FAERS Safety Report 19225903 (Version 1)
Quarter: 2021Q2

REPORT INFORMATION
  Report Type: Spontaneous
  Country: US (occurrence: US)
  Receive Date: 20210505
  Receipt Date: 20210505
  Transmission Date: 20210717
  Serious: No
  Sender: FDA-Public Use
  Company Number: US-ROCHE-2654557

PATIENT
  Sex: Male

DRUGS (2)
  1. AVASTIN [Suspect]
     Active Substance: BEVACIZUMAB
     Indication: EPISTAXIS
  2. AVASTIN [Suspect]
     Active Substance: BEVACIZUMAB
     Indication: HEREDITARY HAEMORRHAGIC TELANGIECTASIA
     Dosage: ONGOING YES
     Route: 058
     Dates: start: 20200804

REACTIONS (3)
  - Off label use [Unknown]
  - No adverse event [Unknown]
  - Product use in unapproved indication [Unknown]
